FAERS Safety Report 6467303-0 (Version None)
Quarter: 2009Q4

REPORT INFORMATION
  Report Type: 
  Country: None (occurrence: None)
  Receive Date: 20091130
  Receipt Date: 20091110
  Transmission Date: 20100525
  Serious: Yes (Other)
  Sender: FDA-Public Use
  Company Number: 2009AP004554

PATIENT
  Age: 45 Year
  Sex: Female
  Weight: 93.8946 kg

DRUGS (2)
  1. CETIRIZINE HCL [Suspect]
     Dosage: PO
     Route: 048
  2. WARFARIN SODIUM [Suspect]
     Dosage: 5 MG; QD; PO, 15 MG;QD;PO
     Route: 048

REACTIONS (2)
  - INTERNATIONAL NORMALISED RATIO DECREASED [None]
  - PRODUCT COMMINGLING [None]
